FAERS Safety Report 12466532 (Version 1)
Quarter: 2016Q2

REPORT INFORMATION
  Report Type: Spontaneous
  Country: US (occurrence: US)
  Receive Date: 20160615
  Receipt Date: 20160615
  Transmission Date: 20160815
  Serious: Yes (Other)
  Sender: FDA-Public Use
  Company Number: US-BAUSCH-BL-2016-013836

PATIENT
  Age: 81 Year
  Sex: Female
  Weight: 70.37 kg

DRUGS (3)
  1. LISINOPRIL. [Concomitant]
     Active Substance: LISINOPRIL
     Indication: HYPERTENSION
     Route: 048
  2. TIMOPTIC [Suspect]
     Active Substance: TIMOLOL MALEATE
     Indication: GLAUCOMA
     Dosage: 1 GTT IN EACH EYE
     Route: 047
     Dates: start: 2012, end: 20160311
  3. TIMOPTIC [Suspect]
     Active Substance: TIMOLOL MALEATE
     Route: 047
     Dates: start: 201603, end: 20160320

REACTIONS (3)
  - Heart valve replacement [Unknown]
  - Erythema [Recovered/Resolved]
  - Pain [Recovered/Resolved]

NARRATIVE: CASE EVENT DATE: 20160205
